FAERS Safety Report 22966699 (Version 5)
Quarter: 2025Q1

REPORT INFORMATION
  Report Type: Spontaneous
  Country: IN (occurrence: IN)
  Receive Date: 20230921
  Receipt Date: 20250103
  Transmission Date: 20250408
  Serious: Yes (Other)
  Sender: PFIZER
  Company Number: IN-PFIZER INC-PV202300075880

PATIENT
  Age: 56 Year
  Sex: Female

DRUGS (3)
  1. LORLATINIB [Suspect]
     Active Substance: LORLATINIB
     Indication: Lung cancer metastatic
     Dosage: 100 MG, 1X/DAY
     Route: 048
     Dates: start: 20230401
  2. LORLATINIB [Suspect]
     Active Substance: LORLATINIB
     Dates: end: 20230704
  3. LORLATINIB [Suspect]
     Active Substance: LORLATINIB
     Dosage: 100 MG, 1X/DAY
     Route: 048
     Dates: end: 20240812

REACTIONS (3)
  - Hallucination [Unknown]
  - Memory impairment [Unknown]
  - Neoplasm progression [Unknown]
